FAERS Safety Report 20732429 (Version 1)
Quarter: 2022Q2

REPORT INFORMATION
  Report Type: Spontaneous
  Country: CZ (occurrence: CZ)
  Receive Date: 20220420
  Receipt Date: 20220420
  Transmission Date: 20220721
  Serious: Yes (Life-Threatening, Hospitalization, Other)
  Sender: FDA-Public Use
  Company Number: None

PATIENT
  Age: 28 Year
  Sex: Female
  Weight: 66 kg

DRUGS (2)
  1. TYSABRI [Suspect]
     Active Substance: NATALIZUMAB
     Indication: Multiple sclerosis
     Dosage: ADMINISTERED TWICE IN THE MEDICAL CENTRE
     Route: 017
     Dates: start: 202201, end: 202202
  2. MOCLOBEMIDE [Concomitant]
     Active Substance: MOCLOBEMIDE
     Indication: Mixed anxiety and depressive disorder
     Dosage: 1-0-0
     Route: 048

REACTIONS (7)
  - Acute myocardial infarction [Unknown]
  - Pericardial effusion [Unknown]
  - Coronary artery occlusion [Recovered/Resolved]
  - Cardiac failure [Recovered/Resolved]
  - Coronary artery dissection [Unknown]
  - Coronary artery occlusion [Recovered/Resolved]
  - Chest discomfort [Recovered/Resolved]

NARRATIVE: CASE EVENT DATE: 20220321
